FAERS Safety Report 11197772 (Version 1)
Quarter: 2015Q2

REPORT INFORMATION
  Report Type: Spontaneous
  Country: US (occurrence: US)
  Receive Date: 20150617
  Receipt Date: 20150617
  Transmission Date: 20150821
  Serious: No
  Sender: FDA-Public Use
  Company Number: US-TAKEDA-2014TUS007077

PATIENT
  Sex: Male

DRUGS (1)
  1. ULORIC [Suspect]
     Active Substance: FEBUXOSTAT
     Indication: NEPHROLITHIASIS
     Dosage: 40 MG(SAMPLES), UNK
     Route: 048
     Dates: start: 201407

REACTIONS (2)
  - No adverse event [Unknown]
  - Expired product administered [Unknown]
